FAERS Safety Report 11679896 (Version 2)
Quarter: 2015Q4

REPORT INFORMATION
  Report Type: Spontaneous
  Country: US (occurrence: US)
  Receive Date: 20151027
  Receipt Date: 20151104
  Transmission Date: 20160304
  Serious: No
  Sender: FDA-Public Use
  Company Number: US-ELI_LILLY_AND_COMPANY-US201003008524

PATIENT
  Sex: Female

DRUGS (4)
  1. FORTEO [Suspect]
     Active Substance: TERIPARATIDE
     Indication: OSTEOPOROSIS
  2. ALEVE [Concomitant]
     Active Substance: NAPROXEN SODIUM
     Dosage: 1 D/F, AS NEEDED
  3. IBUPROFEN. [Concomitant]
     Active Substance: IBUPROFEN
     Dosage: 1 D/F, AS NEEDED
  4. PREDNISONE. [Concomitant]
     Active Substance: PREDNISONE
     Dosage: 2.5 MG, UNKNOWN

REACTIONS (3)
  - Injection site bruising [Unknown]
  - Venous injury [Recovered/Resolved]
  - Injection site pain [Recovering/Resolving]
